FAERS Safety Report 18519642 (Version 3)
Quarter: 2020Q4

REPORT INFORMATION
  Report Type: Spontaneous
  Country: RU (occurrence: RU)
  Receive Date: 20201118
  Receipt Date: 20201210
  Transmission Date: 20210114
  Serious: Yes (Death, Life-Threatening, Hospitalization, Other)
  Sender: FDA-Public Use
  Company Number: RU-PFIZER INC-2020454179

PATIENT
  Age: 78 Year
  Sex: Male
  Weight: 165 kg

DRUGS (4)
  1. TOFACITINIB CITRATE [Suspect]
     Active Substance: TOFACITINIB CITRATE
     Indication: COVID-19 TREATMENT
     Dosage: 20 MG TWICE
     Dates: start: 20200622, end: 20200630
  2. KALETRA [Suspect]
     Active Substance: LOPINAVIR\RITONAVIR
     Indication: COVID-19 TREATMENT
     Dosage: 1 DF, TWICE DAILY
     Dates: start: 20200623, end: 20200701
  3. TOCILIZUMAB. [Suspect]
     Active Substance: TOCILIZUMAB
     Indication: COVID-19 TREATMENT
     Dosage: 400 MG, ONCE DAILY
     Dates: start: 20200623, end: 20200623
  4. DEXAMETHASONE. [Suspect]
     Active Substance: DEXAMETHASONE
     Indication: COVID-19 TREATMENT
     Dosage: 8 MG, ONCE DAILY
     Dates: start: 20200623, end: 20200702

REACTIONS (7)
  - Hydrothorax [Unknown]
  - Off label use [Unknown]
  - Brain oedema [Unknown]
  - Acute respiratory distress syndrome [Unknown]
  - Poisoning [Unknown]
  - COVID-19 pneumonia [Fatal]
  - Pulmonary oedema [Unknown]

NARRATIVE: CASE EVENT DATE: 2020
